FAERS Safety Report 7276307-X (Version None)
Quarter: 2011Q1

REPORT INFORMATION
  Report Type: 
  Country: None (occurrence: None)
  Receive Date: 20110202
  Receipt Date: 20110202
  Transmission Date: 20110831
  Serious: Yes (Life-Threatening, Hospitalization)
  Sender: FDA-Public Use
  Company Number: None

PATIENT
  Age: 80 Year
  Sex: Female
  Weight: 63.7757 kg

DRUGS (3)
  1. OXALIPLATIN [Suspect]
     Indication: COLON CANCER
     Dosage: 105 EVERY 2 WEEKS IV
     Route: 042
     Dates: start: 20100407, end: 20110119
  2. LEUCOVORIN [Suspect]
     Indication: COLON CANCER
     Dosage: 335 EVERY 2 WEEKS IV
     Route: 042
     Dates: start: 20100407, end: 20110119
  3. AVASTIN [Concomitant]

REACTIONS (4)
  - UNRESPONSIVE TO STIMULI [None]
  - HYPERHIDROSIS [None]
  - BLOOD PRESSURE DECREASED [None]
  - HYPOXIA [None]
